FAERS Safety Report 5079107-4 (Version None)
Quarter: 2006Q3

REPORT INFORMATION
  Report Type: 
  Country: None (occurrence: None)
  Receive Date: 20060808
  Receipt Date: 20060727
  Transmission Date: 20061208
  Serious: Yes (Hospitalization, Other)
  Sender: FDA-Public Use
  Company Number: GXKR2006PL03985

PATIENT
  Age: 74 Year
  Sex: Male

DRUGS (8)
  1. AMIODARONE HCL [Suspect]
     Indication: VENTRICULAR FIBRILLATION
     Dosage: SEE IMAGE
     Route: 042
  2. TICLOPIDINE (NGX)(TICLOPIDINE) [Suspect]
     Dosage: 250 MG, BID
  3. CLOPIDOGREL [Suspect]
     Dosage: SEE IMAGE
  4. INDOBUFEN(INDOBUFEN) [Suspect]
     Dosage: 2 X 200 MG
  5. ASPIRIN [Concomitant]
  6. HEPARIN [Concomitant]
  7. BETA BLOCKING AGENTS [Concomitant]
  8. ACE INHIBITOR NOS [Concomitant]

REACTIONS (5)
  - CHEST X-RAY ABNORMAL [None]
  - HAEMOGLOBIN DECREASED [None]
  - HAEMOPTYSIS [None]
  - PULMONARY HAEMORRHAGE [None]
  - PYREXIA [None]
